FAERS Safety Report 21411835 (Version 1)
Quarter: 2022Q4

REPORT INFORMATION
  Report Type: Spontaneous
  Country: US (occurrence: None)
  Receive Date: 20221005
  Receipt Date: 20221005
  Transmission Date: 20230112
  Serious: Yes (Other)
  Sender: FDA-Public Use
  Company Number: None

PATIENT
  Age: 54 Year
  Sex: Female
  Weight: 52.62 kg

DRUGS (1)
  1. LIDOCAINE [Suspect]
     Active Substance: LIDOCAINE
     Indication: Tenotomy
     Dosage: FREQUENCY : ONCE?DURATION : 2-3 DAYS?
     Dates: start: 20220910, end: 20220910

REACTIONS (3)
  - Gastroenteritis [None]
  - Muscle spasms [None]
  - Fatigue [None]

NARRATIVE: CASE EVENT DATE: 20220910
